FAERS Safety Report 7340754-8 (Version None)
Quarter: 2011Q1

REPORT INFORMATION
  Report Type: 
  Country: None (occurrence: None)
  Receive Date: 20110309
  Receipt Date: 20110304
  Transmission Date: 20110831
  Serious: Yes (Hospitalization, Other)
  Sender: FDA-Public Use
  Company Number: US-ROCHE-763781

PATIENT
  Sex: Male
  Weight: 79.4 kg

DRUGS (5)
  1. NORVASC [Concomitant]
  2. CARAFATE [Concomitant]
  3. ZOFRAN [Concomitant]
  4. CATAPRES [Concomitant]
  5. XELODA [Suspect]
     Dosage: FREQUENCY REPORTED: 14 DAYS.
     Route: 048

REACTIONS (3)
  - DEHYDRATION [None]
  - APHAGIA [None]
  - DYSPHAGIA [None]
